FAERS Safety Report 4562552-0 (Version None)
Quarter: 2005Q1

REPORT INFORMATION
  Report Type: 
  Country: None (occurrence: None)
  Receive Date: 20050127
  Receipt Date: 20050124
  Transmission Date: 20050727
  Serious: Yes (Hospitalization)
  Sender: FDA-Public Use
  Company Number: US-MERCK-0501USA03621

PATIENT
  Age: 50 Year
  Sex: Female

DRUGS (3)
  1. CRIXIVAN [Suspect]
     Route: 048
     Dates: start: 20000101
  2. SOMA [Concomitant]
     Route: 065
  3. OXYCONTIN [Concomitant]
     Route: 065

REACTIONS (2)
  - BLOOD POTASSIUM DECREASED [None]
  - TORSADE DE POINTES [None]
